FAERS Safety Report 5294368-4 (Version None)
Quarter: 2007Q2

REPORT INFORMATION
  Report Type: 
  Country: None (occurrence: None)
  Receive Date: 20070409
  Receipt Date: 20070409
  Transmission Date: 20071010
  Serious: Yes (Disabling, Other)
  Sender: FDA-Public Use
  Company Number: None

PATIENT
  Age: 34 Year
  Sex: Female
  Weight: 54.8852 kg

DRUGS (2)
  1. OPTIMARK [Suspect]
     Indication: NUCLEAR MAGNETIC RESONANCE IMAGING
     Dosage: 11CCS ONCE IV
     Route: 042
     Dates: start: 20070303, end: 20070303
  2. . [Concomitant]

REACTIONS (9)
  - ALOPECIA [None]
  - BACK PAIN [None]
  - DRUG TOXICITY [None]
  - FATIGUE [None]
  - MADAROSIS [None]
  - MUSCULAR WEAKNESS [None]
  - PAIN [None]
  - PHARMACEUTICAL PRODUCT COMPLAINT [None]
  - RASH PUSTULAR [None]
